FAERS Safety Report 5051434-6 (Version None)
Quarter: 2006Q3

REPORT INFORMATION
  Report Type: 
  Country: None (occurrence: None)
  Receive Date: 20060710
  Receipt Date: 20060628
  Transmission Date: 20061208
  Serious: Yes (Other)
  Sender: FDA-Public Use
  Company Number: 225576

PATIENT
  Age: 14 Year
  Sex: Female
  Weight: 59.1 kg

DRUGS (4)
  1. NUTROPIN [Suspect]
     Indication: GROWTH HORMONE DEFICIENCY
     Dosage: 0.67 ML, QDX6D/WK, SUBCUTANEOUS
     Route: 058
     Dates: start: 19970103
  2. LUPRON [Concomitant]
  3. COZAAR [Concomitant]
  4. PROCARDIA [Concomitant]

REACTIONS (3)
  - BRAIN NEOPLASM [None]
  - NEOPLASM RECURRENCE [None]
  - PRIMITIVE NEUROECTODERMAL TUMOUR [None]
